FAERS Safety Report 12997882 (Version 4)
Quarter: 2017Q1

REPORT INFORMATION
  Report Type: Report from Study
  Country: US (occurrence: US)
  Receive Date: 20161205
  Receipt Date: 20170307
  Transmission Date: 20170428
  Serious: Yes (Life-Threatening, Hospitalization)
  Sender: FDA-Public Use
  Company Number: US-ROCHE-1858397

PATIENT
  Age: 66 Year
  Sex: Female
  Weight: 55.2 kg

DRUGS (75)
  1. OCEAN SALINE NASAL SPRAY [Concomitant]
     Active Substance: SODIUM CHLORIDE
     Indication: NASAL DRYNESS
     Route: 045
     Dates: start: 20161125, end: 20161130
  2. MEFOXIN [Concomitant]
     Active Substance: CEFOXITIN SODIUM
     Route: 042
     Dates: start: 20161130, end: 20161130
  3. FENTANYL. [Concomitant]
     Active Substance: FENTANYL
     Indication: PAIN
     Route: 042
     Dates: start: 20161130, end: 20170113
  4. DIFLUCAN [Concomitant]
     Active Substance: FLUCONAZOLE
     Indication: PROPHYLAXIS
     Dosage: DOSE: 1 OTHER
     Route: 065
     Dates: start: 20161212, end: 20170127
  5. TRANDATE [Concomitant]
     Active Substance: LABETALOL HYDROCHLORIDE
     Indication: HYPERTENSION
     Route: 042
     Dates: start: 20161130, end: 20161203
  6. LIDOCAINE. [Concomitant]
     Active Substance: LIDOCAINE
     Indication: TACHYCARDIA
     Route: 061
     Dates: start: 20161129, end: 20170210
  7. ATIVAN [Concomitant]
     Active Substance: LORAZEPAM
     Indication: ANXIETY
     Route: 048
     Dates: start: 20161129, end: 20161228
  8. PROTONIX [Concomitant]
     Active Substance: PANTOPRAZOLE SODIUM
     Indication: GASTROOESOPHAGEAL REFLUX DISEASE
     Route: 042
     Dates: start: 20161118, end: 20170209
  9. K-DUR [Concomitant]
     Active Substance: POTASSIUM CHLORIDE
     Indication: BLOOD PHOSPHORUS DECREASED
     Dosage: DOSE: 40 OTHER?EXTENDED RELEASE
     Route: 048
     Dates: start: 20170105, end: 20170113
  10. PROPOFOL. [Concomitant]
     Active Substance: PROPOFOL
     Dosage: DOSE: 1 UNIT?REPORTED AS: PROPOFOL 1% 100ML IV
     Route: 042
     Dates: start: 20161130, end: 20161213
  11. SODIUM PHOSPHATE [Concomitant]
     Active Substance: SODIUM PHOSPHATE
     Indication: FLUID REPLACEMENT
     Dosage: REPORTED AS: SODIUM PHOSPHATE 10MMOL IN NS-100ML IVPB?DOSE: 1 UNIT
     Route: 042
     Dates: start: 20161119, end: 20170208
  12. NOVOLOG [Concomitant]
     Active Substance: INSULIN ASPART
     Dosage: DOSE: 1 UNIT
     Route: 042
     Dates: start: 20161130, end: 20170210
  13. CIPRO [Concomitant]
     Active Substance: CIPROFLOXACIN HYDROCHLORIDE
     Route: 048
     Dates: start: 20170114, end: 20170127
  14. HURRICAINE [Concomitant]
     Active Substance: BENZOCAINE
     Indication: DRY MOUTH
     Route: 048
     Dates: start: 20161120, end: 20161130
  15. DECADRON [Concomitant]
     Active Substance: DEXAMETHASONE
     Indication: INFLAMMATION
     Route: 050
     Dates: start: 20161130, end: 20170207
  16. LEVONOX [Concomitant]
     Active Substance: ENOXAPARIN
     Indication: ANTICOAGULANT THERAPY
     Dosage: DOSE: 1 UNIT
     Route: 050
     Dates: start: 20161121, end: 20170210
  17. LIDODERM [Concomitant]
     Active Substance: LIDOCAINE
     Indication: TACHYCARDIA
     Route: 058
     Dates: start: 20161201, end: 20170123
  18. LIDOCAINE. [Concomitant]
     Active Substance: LIDOCAINE
     Dosage: DOSE: 1 UNIT
     Route: 048
     Dates: start: 20161129, end: 20170210
  19. MAGNESIUM SULFATE. [Concomitant]
     Active Substance: MAGNESIUM SULFATE
     Dosage: REPORTED AS: MAGNESIUM SULFATE 2 G IN WATER 50 ML IVPB?DOSE: 1 UNIT
     Route: 042
     Dates: start: 20161119, end: 20170208
  20. ZOSYN [Concomitant]
     Active Substance: PIPERACILLIN SODIUM\TAZOBACTAM SODIUM
     Indication: PROPHYLAXIS
     Dosage: REPORTED AS: PIPERACILLIN-TAZOBACTAM (ZOSYN) 4.5G IN NACL 0.9%
     Route: 042
     Dates: start: 20161210, end: 20170209
  21. K-DUR [Concomitant]
     Active Substance: POTASSIUM CHLORIDE
     Dosage: DOSE: 1 UNIT
     Route: 048
     Dates: start: 20170113, end: 20170114
  22. BIOTIN [Concomitant]
     Active Substance: BIOTIN
     Route: 048
  23. AUGMENTIN [Concomitant]
     Active Substance: AMOXICILLIN\CLAVULANATE POTASSIUM
     Dosage: DOSE: 1 OTHER
     Route: 050
     Dates: start: 20161221, end: 20170115
  24. PEPCID (UNITED STATES) [Concomitant]
     Indication: GASTROOESOPHAGEAL REFLUX DISEASE
     Route: 050
     Dates: start: 20161120, end: 20170115
  25. IMODIUM [Concomitant]
     Active Substance: LOPERAMIDE HYDROCHLORIDE
     Indication: DIARRHOEA
     Dosage: DOSE: 1 UNIT
     Route: 048
     Dates: start: 20161216, end: 20161224
  26. ZOFRAN [Concomitant]
     Active Substance: ONDANSETRON HYDROCHLORIDE
     Indication: NAUSEA
     Route: 042
     Dates: start: 20161130, end: 20170210
  27. COMPAZINE [Concomitant]
     Active Substance: PROCHLORPERAZINE MALEATE
     Indication: NAUSEA
     Route: 042
     Dates: start: 20161228, end: 20161228
  28. COMPAZINE [Concomitant]
     Active Substance: PROCHLORPERAZINE MALEATE
     Indication: VOMITING
  29. ZEMURON [Concomitant]
     Active Substance: ROCURONIUM BROMIDE
     Dosage: DOSE: 1 UNIT
     Route: 042
     Dates: start: 20161130, end: 20161212
  30. ZOLOFT [Concomitant]
     Active Substance: SERTRALINE HYDROCHLORIDE
     Indication: DEPRESSION
     Route: 048
     Dates: start: 20161215, end: 20170115
  31. SODIUM CHLORIDE. [Concomitant]
     Active Substance: SODIUM CHLORIDE
     Indication: FLUID REPLACEMENT
     Dosage: DOSE: 1 UNIT
     Route: 050
     Dates: start: 20161130, end: 20170210
  32. TIGAN [Concomitant]
     Active Substance: TRIMETHOBENZAMIDE HYDROCHLORIDE
     Indication: VOMITING
  33. VASOSTRICT [Concomitant]
     Active Substance: VASOPRESSIN
     Dosage: 40 UNITS IN DEXTROSE 5% WATER
     Route: 042
     Dates: start: 20161229, end: 20170209
  34. REFRESH TEARS [Concomitant]
     Active Substance: CARBOXYMETHYLCELLULOSE SODIUM
     Dosage: DOSE 1 DROP?REPORTED AS: ARTIFICIAL TEARS
     Route: 047
     Dates: start: 20161231, end: 20170115
  35. AMPICILLIN [Concomitant]
     Active Substance: AMPICILLIN
     Route: 042
     Dates: start: 20161130, end: 20161130
  36. HEPARIN [Concomitant]
     Active Substance: HEPARIN SODIUM
     Indication: PROPHYLAXIS
     Dosage: DOSE: 5000 UNITS
     Route: 042
     Dates: start: 20161130, end: 20170209
  37. TORADOL [Concomitant]
     Active Substance: KETOROLAC TROMETHAMINE
     Indication: PAIN
     Route: 042
     Dates: start: 20161213, end: 20161219
  38. LACTATED RINGERS [Concomitant]
     Active Substance: CALCIUM CHLORIDE\POTASSIUM CHLORIDE\SODIUM CHLORIDE\SODIUM LACTATE
     Indication: DEHYDRATION
     Route: 042
     Dates: start: 20161130, end: 20170208
  39. XYLOCAINE [Concomitant]
     Active Substance: LIDOCAINE HYDROCHLORIDE
     Indication: TACHYCARDIA
     Dosage: DOSE: 1 UNIT
     Route: 042
     Dates: start: 20161130, end: 20170209
  40. FLAGYL [Concomitant]
     Active Substance: METRONIDAZOLE\METRONIDAZOLE HYDROCHLORIDE
     Dosage: IN 100 ML NPB
     Route: 042
     Dates: start: 20161210, end: 20170210
  41. NARCAN [Concomitant]
     Active Substance: NALOXONE HYDROCHLORIDE
     Indication: PROPHYLAXIS
     Dosage: DOSE: 1 UNIT
     Route: 042
     Dates: start: 20161130, end: 20161224
  42. ZOFRAN [Concomitant]
     Active Substance: ONDANSETRON HYDROCHLORIDE
     Indication: VOMITING
  43. POTASSIUM CHLORIDE. [Concomitant]
     Active Substance: POTASSIUM CHLORIDE
     Indication: BLOOD POTASSIUM DECREASED
     Dosage: IN WATER 100 ML IVPB?DOSE: 1 UNIT
     Route: 042
     Dates: start: 20161120, end: 20170208
  44. TIGAN [Concomitant]
     Active Substance: TRIMETHOBENZAMIDE HYDROCHLORIDE
     Indication: NAUSEA
     Route: 042
     Dates: start: 20161130, end: 20161130
  45. ATEZOLIZUMAB [Suspect]
     Active Substance: ATEZOLIZUMAB
     Indication: NEOPLASM
     Dosage: MOST RECENT DOSE ADMINISTERED ON 07/NOV/2016.?STARTING DOSE AS PER PROTOCOL
     Route: 042
     Dates: start: 20160926
  46. CEPACOL (UNITED STATES) [Concomitant]
     Indication: DRY MOUTH
     Dosage: DOSE: 1 UNIT
     Route: 048
     Dates: start: 20161123, end: 20161130
  47. DEXTROSE. [Concomitant]
     Active Substance: DEXTROSE
     Indication: HOSPITALISATION
     Route: 042
     Dates: start: 20161130, end: 20170210
  48. NORCO [Concomitant]
     Active Substance: ACETAMINOPHEN\HYDROCODONE BITARTRATE
     Indication: PAIN
     Dosage: DOSE: 1 UNIT (5-325 MG)
     Route: 050
     Dates: start: 20161130
  49. DILAUDID [Concomitant]
     Active Substance: HYDROMORPHONE HYDROCHLORIDE
     Indication: PAIN
     Dosage: DOSE: 1 UNIT
     Route: 050
     Dates: start: 20161118, end: 20170210
  50. PHOSPHA 250 NEUTRAL [Concomitant]
     Active Substance: POTASSIUM PHOSPHATE, MONOBASIC\SODIUM PHOSPHATE, DIBASIC, ANHYDROUS\SODIUM PHOSPHATE, MONOBASIC, MONOHYDRATE
     Indication: BLOOD PHOSPHORUS DECREASED
     Dosage: DOSE: 1 UNIT
     Route: 048
     Dates: start: 20170105, end: 20170114
  51. VANCOMYCIN [Concomitant]
     Active Substance: VANCOMYCIN
     Indication: PROPHYLAXIS
     Dosage: DOSE: 1 UNIT
     Route: 042
     Dates: start: 20161228, end: 20170209
  52. VANCOMYCIN [Concomitant]
     Active Substance: VANCOMYCIN
     Dosage: DOSE: 1 UNIT
     Route: 042
     Dates: start: 20161215, end: 20170104
  53. LIPITOR [Concomitant]
     Active Substance: ATORVASTATIN CALCIUM
     Indication: HYPERLIPIDAEMIA
     Route: 048
  54. BIOSOL (AMINO ACIDS) [Concomitant]
     Route: 048
  55. PRILOSEC [Concomitant]
     Active Substance: OMEPRAZOLE MAGNESIUM
     Indication: GASTROOESOPHAGEAL REFLUX DISEASE
     Route: 048
  56. DULCOLAX (BISACODYL) [Concomitant]
     Active Substance: BISACODYL
     Indication: CONSTIPATION
     Route: 050
     Dates: start: 20161119, end: 20170210
  57. NOREPINEPHRINE [Concomitant]
     Active Substance: NOREPINEPHRINE\NOREPINEPHRINE BITARTRATE
     Indication: HYPOTENSION
     Dosage: REPORTED AS: NOREPINEPHRINE 16MG IN 0.9% NACL
     Route: 042
     Dates: start: 20161228, end: 20170209
  58. BEVACIZUMAB [Suspect]
     Active Substance: BEVACIZUMAB
     Indication: NEOPLASM
     Dosage: MOST RECENT DOSE OF 841.5 MG WAS ADMINISTERED ON 07/NOV/2016.?STARTING DOSE AS PER PROTOCOL
     Route: 042
     Dates: start: 20160926
  59. NAPROSYN [Concomitant]
     Active Substance: NAPROXEN
     Indication: PAIN
     Route: 048
     Dates: start: 20161221, end: 20170123
  60. ACETAMINOPHEN. [Concomitant]
     Active Substance: ACETAMINOPHEN
     Indication: PAIN
     Route: 048
     Dates: start: 20161119, end: 20170115
  61. ALBUMIN HUMAN [Concomitant]
     Active Substance: ALBUMIN HUMAN
     Route: 042
     Dates: start: 20161130, end: 20161214
  62. CALCIUM CARBONATE. [Concomitant]
     Active Substance: CALCIUM CARBONATE
     Indication: ELECTROLYTE SUBSTITUTION THERAPY
     Route: 048
     Dates: start: 20170114, end: 20170115
  63. DEXTROSE/SODIUM CHLORIDE [Concomitant]
     Indication: FLUID REPLACEMENT
     Dosage: DOSE : 1 OTHER?REPORTED AS: DEXTROSE 5%-0.45% SODIUM CHLORIDE IV 1,000 ML
     Route: 042
     Dates: start: 20161213, end: 20170204
  64. DEXTROSE. [Concomitant]
     Active Substance: DEXTROSE
     Indication: DEHYDRATION
  65. BENADRYL [Concomitant]
     Active Substance: DIPHENHYDRAMINE HYDROCHLORIDE
     Indication: WOUND TREATMENT
     Route: 042
     Dates: start: 20161118, end: 20161130
  66. ROBINUL [Concomitant]
     Active Substance: GLYCOPYRROLATE
     Dosage: DOSE: 0.2 UNITS
     Route: 042
     Dates: start: 20161212, end: 20161212
  67. DEMEROL [Concomitant]
     Active Substance: MEPERIDINE HYDROCHLORIDE
     Indication: PAIN
     Route: 042
     Dates: start: 20161130, end: 20161130
  68. LOPRESSOR [Concomitant]
     Active Substance: METOPROLOL TARTRATE
     Indication: HYPERTENSION
     Route: 042
     Dates: start: 20161230, end: 20170101
  69. MIDAZOLAM [Concomitant]
     Active Substance: MIDAZOLAM HYDROCHLORIDE
     Dosage: DOSE: 1 UNIT?REPORTED AS: MIDAZOLAM (PF) VERSED
     Route: 042
     Dates: start: 20161130, end: 20170113
  70. REMERON [Concomitant]
     Active Substance: MIRTAZAPINE
     Indication: DEPRESSION
     Route: 048
     Dates: start: 20161222
  71. KAYEXALATE [Concomitant]
     Active Substance: SODIUM POLYSTYRENE SULFONATE
     Route: 048
     Dates: start: 20161231, end: 20161231
  72. FAT EMULSION NOS [Concomitant]
     Active Substance: EGG PHOSPHOLIPIDS\SAFFLOWER OIL\SOYBEAN OIL
     Route: 042
     Dates: start: 20161123, end: 20170207
  73. MAGNESIUM OXIDE. [Concomitant]
     Active Substance: MAGNESIUM OXIDE
     Indication: ELECTROLYTE IMBALANCE
     Dosage: DOSE: 1 UNIT
     Route: 042
     Dates: start: 20170105, end: 20170114
  74. REGLAN [Concomitant]
     Active Substance: METOCLOPRAMIDE HYDROCHLORIDE
     Indication: GASTROOESOPHAGEAL REFLUX DISEASE
     Route: 042
     Dates: start: 20161120, end: 20161123
  75. POTASSIUM CHLORIDE. [Concomitant]
     Active Substance: POTASSIUM CHLORIDE
     Indication: MALNUTRITION
     Dosage: DOSE: 1 UNIT
     Route: 042
     Dates: start: 20161126, end: 20170108

REACTIONS (9)
  - Leukocytosis [Not Recovered/Not Resolved]
  - Wound drainage [Recovered/Resolved]
  - Enterocutaneous fistula [Recovered/Resolved]
  - Peritonitis [Recovered/Resolved]
  - Septic shock [Not Recovered/Not Resolved]
  - Enterocutaneous fistula [Not Recovered/Not Resolved]
  - Abdominal infection [Not Recovered/Not Resolved]
  - Small intestinal obstruction [Recovered/Resolved]
  - Hypoxia [Not Recovered/Not Resolved]

NARRATIVE: CASE EVENT DATE: 20161116
